FAERS Safety Report 7270942-0 (Version None)
Quarter: 2011Q1

REPORT INFORMATION
  Report Type: 
  Country: None (occurrence: None)
  Receive Date: 20110121
  Receipt Date: 20110121
  Transmission Date: 20110831
  Serious: No
  Sender: FDA-Public Use
  Company Number: None

PATIENT
  Age: 62 Year
  Sex: Female
  Weight: 53.5244 kg

DRUGS (1)
  1. LEVAQUIN [Suspect]
     Indication: PNEUMONIA
     Dosage: 500 MG 1X DAILY PO
     Route: 048
     Dates: start: 20110107

REACTIONS (3)
  - ABASIA [None]
  - TENDONITIS [None]
  - MUSCULOSKELETAL DISCOMFORT [None]
